FAERS Safety Report 18313581 (Version 1)
Quarter: 2020Q3

REPORT INFORMATION
  Report Type: Spontaneous
  Country: US (occurrence: US)
  Receive Date: 20200925
  Receipt Date: 20200925
  Transmission Date: 20201103
  Serious: No
  Sender: FDA-Public Use
  Company Number: US-ELI_LILLY_AND_COMPANY-US202009004811

PATIENT

DRUGS (2)
  1. GALCANEZUMAB [Suspect]
     Active Substance: GALCANEZUMAB
     Dosage: UNK, UNKNOWN, FOR CLUSTER HEADACHE
     Route: 065
     Dates: end: 20200901
  2. GALCANEZUMAB [Suspect]
     Active Substance: GALCANEZUMAB
     Indication: MIGRAINE
     Dosage: UNK, UNKNOWN
     Route: 065

REACTIONS (1)
  - Cluster headache [Unknown]
